FAERS Safety Report 9393515 (Version 2)
Quarter: 2014Q1

REPORT INFORMATION
  Report Type: Report from Study
  Country: US (occurrence: US)
  Receive Date: 20130710
  Receipt Date: 20140227
  Transmission Date: 20141002
  Serious: Yes (Death, Hospitalization)
  Sender: FDA-Public Use
  Company Number: US-BRISTOL-MYERS SQUIBB COMPANY-19072339

PATIENT
  Age: 72 Year
  Sex: Male
  Weight: 70.35 kg

DRUGS (13)
  1. YERVOY [Suspect]
     Indication: MALIGNANT MELANOMA
     Route: 042
     Dates: start: 20130614, end: 20130614
  2. ALPRAZOLAM [Concomitant]
     Route: 048
  3. CELEBREX [Concomitant]
     Route: 048
  4. CRANBERRY [Concomitant]
     Dosage: TABS
     Route: 048
  5. DEXAMETHASONE [Concomitant]
     Dosage: TABS?FOR 30 DAYS
     Route: 048
  6. DOXAZOSIN [Concomitant]
     Dosage: TABS?FOR 30 DAYS
     Route: 048
  7. ESCITALOPRAM [Concomitant]
     Dosage: TABS?FOR 30 DAYS
     Route: 048
  8. LIPITOR [Concomitant]
     Dosage: TABS?FOR 30 DAYS
     Route: 048
  9. LISINOPRIL [Concomitant]
     Dosage: TABS?FOR 30 DAYS
     Route: 048
  10. MELATONIN [Concomitant]
  11. OMEPRAZOLE [Concomitant]
     Dosage: DELAYED RELEASE CAPS
     Route: 048
  12. SEROQUEL [Concomitant]
     Dosage: TABS?FOR 30 DAYS
     Route: 048
  13. ZINC ACETATE [Concomitant]
     Route: 048

REACTIONS (2)
  - Malignant neoplasm progression [Fatal]
  - Fall [Unknown]
